FAERS Safety Report 10258400 (Version 1)
Quarter: 2014Q2

REPORT INFORMATION
  Report Type: Spontaneous
  Country: US (occurrence: US)
  Receive Date: 20140625
  Receipt Date: 20140625
  Transmission Date: 20141212
  Serious: No
  Sender: FDA-Public Use
  Company Number: US-ASTRAZENECA-2014SE44621

PATIENT
  Age: 70 Year
  Sex: Male
  Weight: 95.3 kg

DRUGS (5)
  1. SYMBICORT [Suspect]
     Indication: ASTHMA
     Dosage: 160/4.5 MCG, 2 PUFFS BID
     Route: 055
     Dates: start: 201404
  2. OMEPRAZOLE [Suspect]
     Indication: GASTROOESOPHAGEAL REFLUX DISEASE
     Route: 048
     Dates: start: 201403
  3. ALBUTEROL PROAIR INHALER [Concomitant]
     Indication: ASTHMA
     Dosage: 90 MCG, 4 TO 6 HOURS PRN
     Route: 055
     Dates: start: 201404
  4. FLOMAX [Concomitant]
     Indication: BENIGN PROSTATIC HYPERPLASIA
     Route: 048
     Dates: start: 2011
  5. FEXOFENADINE  (OTC) [Concomitant]
     Indication: MULTIPLE ALLERGIES
     Dosage: 180 MCG PRN
     Route: 048

REACTIONS (2)
  - Cough [Unknown]
  - Circumstance or information capable of leading to medication error [Unknown]
